FAERS Safety Report 5972921-X (Version None)
Quarter: 2008Q4

REPORT INFORMATION
  Report Type: 
  Country: None (occurrence: None)
  Receive Date: 20081126
  Receipt Date: 20081126
  Transmission Date: 20090506
  Serious: No
  Sender: FDA-Public Use
  Company Number: None

PATIENT
  Sex: Female
  Weight: 72.5755 kg

DRUGS (1)
  1. TREXIMET [Suspect]
     Indication: MIGRAINE
     Dosage: 1 TABLET @ 1ST SIGN OF H/A PO; 1 TABLET 2HRS P 1ST TAB PO
     Route: 048
     Dates: start: 20080801, end: 20080915

REACTIONS (3)
  - ANXIETY [None]
  - CHEST DISCOMFORT [None]
  - THROAT TIGHTNESS [None]
